FAERS Safety Report 7297971-5 (Version None)
Quarter: 2011Q1

REPORT INFORMATION
  Report Type: 
  Country: None (occurrence: None)
  Receive Date: 20110207
  Receipt Date: 20110131
  Transmission Date: 20110831
  Serious: Yes (Other)
  Sender: FDA-Public Use
  Company Number: 2009312657

PATIENT
  Age: 38 Year
  Sex: Female
  Weight: 51 kg

DRUGS (4)
  1. ASPIRIN [Concomitant]
  2. ENOXAPARIN SODIUM [Concomitant]
  3. FRAGMIN [Suspect]
     Indication: PROPHYLAXIS OF ABORTION
     Dosage: 5000 IU, 1X/DAY, SUBCUTANEOUS
     Route: 058
     Dates: start: 20090701, end: 20110126
  4. FRAGMIN [Suspect]
     Indication: ANTIPHOSPHOLIPID ANTIBODIES POSITIVE
     Dosage: 5000 IU, 1X/DAY, SUBCUTANEOUS
     Route: 058
     Dates: start: 20090701, end: 20110126

REACTIONS (5)
  - INJECTION SITE PAIN [None]
  - INJECTION SITE HAEMORRHAGE [None]
  - DRUG EXPOSURE DURING PREGNANCY [None]
  - ABORTION SPONTANEOUS [None]
  - HAEMATOMA [None]
